FAERS Safety Report 5007695-2 (Version None)
Quarter: 2006Q2

REPORT INFORMATION
  Report Type: 
  Country: None (occurrence: None)
  Receive Date: 20060522
  Receipt Date: 20060517
  Transmission Date: 20061013
  Serious: Yes (Death, Hospitalization)
  Sender: FDA-Public Use
  Company Number: US-JNJFOC-20060504203

PATIENT
  Sex: Female

DRUGS (4)
  1. PROPULSID [Suspect]
     Indication: DRUG USE FOR UNKNOWN INDICATION
  2. INSULIN [Concomitant]
  3. COUMADIN [Concomitant]
     Indication: ANTICOAGULANT THERAPY
  4. UNKNOWN [Concomitant]

REACTIONS (2)
  - CARDIAC FAILURE CONGESTIVE [None]
  - DIABETES MELLITUS [None]
